FAERS Safety Report 25243334 (Version 2)
Quarter: 2025Q2

REPORT INFORMATION
  Report Type: Spontaneous
  Country: US (occurrence: US)
  Receive Date: 20250428
  Receipt Date: 20250428
  Transmission Date: 20250717
  Serious: Yes (Other)
  Sender: GILEAD
  Company Number: US-GILEAD-2025-0711661

PATIENT

DRUGS (1)
  1. TRUVADA [Suspect]
     Active Substance: EMTRICITABINE\TENOFOVIR DISOPROXIL FUMARATE
     Indication: Prophylaxis
     Route: 048
     Dates: start: 20200101, end: 20221231

REACTIONS (3)
  - Osteonecrosis [Unknown]
  - Bone loss [Unknown]
  - Vitamin D deficiency [Unknown]
